FAERS Safety Report 19120573 (Version 1)
Quarter: 2021Q2

REPORT INFORMATION
  Report Type: Spontaneous
  Country: US (occurrence: US)
  Receive Date: 20210409
  Receipt Date: 20210409
  Transmission Date: 20210717
  Serious: Yes (Other)
  Sender: FDA-Public Use
  Company Number: None

PATIENT
  Age: 25 Year
  Sex: Female
  Weight: 51.75 kg

DRUGS (3)
  1. METHYLPHENIDATE HCL EXTENDED RELEASE [Suspect]
     Active Substance: METHYLPHENIDATE HYDROCHLORIDE
     Indication: ATTENTION DEFICIT HYPERACTIVITY DISORDER
     Dosage: ?          QUANTITY:1 TABLET(S);?
     Route: 048
     Dates: start: 20191201, end: 20200501
  2. JUNEL [Concomitant]
     Active Substance: ETHINYL ESTRADIOL\NORETHINDRONE ACETATE
  3. CONCERTA [Concomitant]
     Active Substance: METHYLPHENIDATE HYDROCHLORIDE

REACTIONS (13)
  - Therapeutic response changed [None]
  - Product complaint [None]
  - Depression [None]
  - Suicidal ideation [None]
  - Apathy [None]
  - Feeling of despair [None]
  - Product substitution issue [None]
  - Weight decreased [None]
  - Drug ineffective [None]
  - Fatigue [None]
  - Morbid thoughts [None]
  - Disturbance in attention [None]
  - Body mass index abnormal [None]

NARRATIVE: CASE EVENT DATE: 20191201
